FAERS Safety Report 10358451 (Version 1)
Quarter: 2014Q3

REPORT INFORMATION
  Report Type: Spontaneous
  Country: US (occurrence: US)
  Receive Date: 20140801
  Receipt Date: 20140801
  Transmission Date: 20150326
  Serious: Yes (Hospitalization)
  Sender: FDA-Public Use
  Company Number: US-B.I. PHARMACEUTICALS,INC./RIDGEFIELD-2014-BI-34975BP

PATIENT
  Age: 84 Year
  Sex: Female
  Weight: 82.73 kg

DRUGS (12)
  1. ATORVASTATIN [Concomitant]
     Active Substance: ATORVASTATIN
     Dosage: 10 MG
     Route: 048
  2. CLARITIN [Concomitant]
     Active Substance: LORATADINE
     Indication: HYPERSENSITIVITY
     Dosage: 20 MG
     Route: 048
  3. PRESERVISION [Concomitant]
     Dosage: 1 ANZ
     Route: 048
  4. HYDROCORTISONE. [Concomitant]
     Active Substance: HYDROCORTISONE
     Indication: PRURITUS
     Dosage: FORMULATION: TOPICAL CREAM, STRENGTH: 1%
     Route: 065
  5. XALATAN [Concomitant]
     Active Substance: LATANOPROST
     Dosage: 1 ANZ
     Route: 065
  6. COSOPT [Concomitant]
     Active Substance: DORZOLAMIDE HYDROCHLORIDE\TIMOLOL MALEATE
     Dosage: FORMULATION: OPHTHALMIC SOLUTION, DOSE: 1 DROP
     Route: 065
  7. CALAN SR [Concomitant]
     Active Substance: VERAPAMIL HYDROCHLORIDE
     Dosage: 180 MG
     Route: 048
  8. ALKA SELTZER [Concomitant]
     Active Substance: ANHYDROUS CITRIC ACID\ASPIRIN\SODIUM BICARBONATE
     Indication: SINUSITIS
     Route: 065
  9. CENTRUM SILVER [Concomitant]
     Active Substance: VITAMINS
     Dosage: 1 ANZ
     Route: 048
  10. PRADAXA [Suspect]
     Active Substance: DABIGATRAN ETEXILATE MESYLATE
     Indication: ATRIAL FIBRILLATION
     Dosage: 300 MG
     Route: 048
     Dates: end: 20120824
  11. TRIAMTERENE/HYDROCHLOROTHIAZIDE [Concomitant]
     Active Substance: HYDROCHLOROTHIAZIDE\TRIAMTERENE
     Dosage: DOSE PER APPLICATION AND DAILY DOSE: 50MG/75MG
     Route: 048
  12. OMEGA-3 ACIDS [Concomitant]
     Active Substance: OMEGA-3 FATTY ACIDS
     Dosage: 1000 MG
     Route: 048

REACTIONS (3)
  - Haemorrhagic anaemia [Unknown]
  - Gastric ulcer [Unknown]
  - Upper gastrointestinal haemorrhage [Unknown]

NARRATIVE: CASE EVENT DATE: 20120824
